FAERS Safety Report 17215831 (Version 1)
Quarter: 2019Q4

REPORT INFORMATION
  Report Type: Spontaneous
  Country: US (occurrence: US)
  Receive Date: 20191230
  Receipt Date: 20191230
  Transmission Date: 20200122
  Serious: Yes (Hospitalization)
  Sender: FDA-Public Use
  Company Number: US-TEVA-2019-US-1160087

PATIENT
  Age: 9 Month
  Sex: Male
  Weight: 6.3 kg

DRUGS (5)
  1. DEXMEDETOMIDINE. [Concomitant]
     Active Substance: DEXMEDETOMIDINE
     Indication: POSTOPERATIVE ANALGESIA
     Dosage: ADMINISTERED OVER POST-OPERATIVE DAYS 0-16; MAXIMUM DOSE 1.4 MCG/KG/H; DISCONTINUED PRIOR TO NEOS...
     Route: 065
  2. MORPHINE [Suspect]
     Active Substance: MORPHINE
     Indication: POSTOPERATIVE ANALGESIA
     Dosage: ADMINISTERED OVER POST-OPERATIVE DAYS 4-6; MAXIMUM DOSE BASAL 0.01 MG/KG/H, 0.01 MG/KG/ DOSE AS R...
     Route: 065
  3. MORPHINE [Suspect]
     Active Substance: MORPHINE
     Dosage: DOSE: 0.1 MG/KG/DOSE EVERY 2 H AS REQUIRED
     Route: 065
  4. METHADONE [Suspect]
     Active Substance: METHADONE HYDROCHLORIDE
     Indication: POSTOPERATIVE ANALGESIA
     Dosage: ADMINISTERED OVER POST-OPERATIVE DAYS 11-25; MAXIMUM DOSE 0.1 MG/KG EVERY 12H
     Route: 065
  5. FENTANYL. [Suspect]
     Active Substance: FENTANYL
     Indication: POSTOPERATIVE ANALGESIA
     Dosage: ADMINISTERED OVER POST-OPERATIVE DAYS 0-13; MAXIMUM DOSE 10 MCG/KG/H
     Route: 050

REACTIONS (1)
  - Postoperative ileus [Recovered/Resolved]
